FAERS Safety Report 24545642 (Version 1)
Quarter: 2024Q4

REPORT INFORMATION
  Report Type: Spontaneous
  Country: US (occurrence: US)
  Receive Date: 20241024
  Receipt Date: 20241024
  Transmission Date: 20250114
  Serious: No
  Sender: PFIZER
  Company Number: US-PFIZER INC-202400282179

PATIENT
  Age: 73 Year
  Sex: Female
  Weight: 45.359 kg

DRUGS (4)
  1. NURTEC ODT [Suspect]
     Active Substance: RIMEGEPANT SULFATE
     Indication: Migraine
     Dosage: 75MG TABLET EVERY OTHER DAY (ALLOWED TO TAKE ON THE IN BETWEEN DAYS IF NECESSARY)
     Route: 060
     Dates: start: 2020
  2. NURTEC ODT [Suspect]
     Active Substance: RIMEGEPANT SULFATE
     Dosage: 75MG TABLET EVERY OTHER DAY (ALLOWED TO TAKE ON THE IN BETWEEN DAYS IF NECESSARY)
     Route: 060
     Dates: start: 2020
  3. TRAZODONE [Concomitant]
     Active Substance: TRAZODONE HYDROCHLORIDE
     Indication: Sleep disorder
     Dosage: 100 MG, 1X/DAY (AT BEDTIME)
     Route: 048
     Dates: start: 2020
  4. RIZATRIPTAN [Concomitant]
     Active Substance: RIZATRIPTAN
     Indication: Migraine
     Dosage: UNK
     Dates: end: 202311

REACTIONS (1)
  - Drug ineffective [Not Recovered/Not Resolved]

NARRATIVE: CASE EVENT DATE: 20200101
